FAERS Safety Report 16979380 (Version 1)
Quarter: 2019Q4

REPORT INFORMATION
  Report Type: Spontaneous
  Country: PR (occurrence: PR)
  Receive Date: 20191031
  Receipt Date: 20191031
  Transmission Date: 20200122
  Serious: Yes (Hospitalization, Other)
  Sender: FDA-Public Use
  Company Number: PR-AMNEAL PHARMACEUTICALS-2019-AMRX-02371

PATIENT
  Age: 42 Year
  Sex: Female
  Weight: 98 kg

DRUGS (2)
  1. ACTIVELLA [Suspect]
     Active Substance: ESTRADIOL\NORETHINDRONE ACETATE
     Indication: MENORRHAGIA
     Dosage: 2X/DAY
     Route: 048
     Dates: start: 20170525, end: 20170622
  2. ELAGOLIX [Interacting]
     Active Substance: ELAGOLIX
     Indication: MENORRHAGIA
     Dosage: 300 MILLIGRAM, 2X/DAY
     Route: 048
     Dates: start: 20170525, end: 20170622

REACTIONS (2)
  - Pelvic pain [Recovered/Resolved]
  - Menorrhagia [Recovered/Resolved]

NARRATIVE: CASE EVENT DATE: 20170623
